FAERS Safety Report 4794832-8 (Version None)
Quarter: 2005Q3

REPORT INFORMATION
  Report Type: 
  Country: None (occurrence: None)
  Receive Date: 20050914
  Receipt Date: 20041019
  Transmission Date: 20060218
  Serious: Yes (Hospitalization, Other)
  Sender: FDA-Public Use
  Company Number: 163-20785-04100256

PATIENT
  Age: 68 Year
  Sex: Male

DRUGS (5)
  1. THALOMID [Suspect]
     Indication: MULTIPLE MYELOMA
     Dosage: 150 MG, DAILY, ORAL
     Route: 048
     Dates: start: 20040421, end: 20040813
  2. ALTACE [Concomitant]
  3. FLOMAX [Concomitant]
  4. LEVITRA [Concomitant]
  5. IBUPROFEN [Concomitant]

REACTIONS (3)
  - ATRIAL FIBRILLATION [None]
  - BRADYCARDIA [None]
  - SEDATION [None]
